FAERS Safety Report 19884423 (Version 1)
Quarter: 2021Q3

REPORT INFORMATION
  Report Type: Spontaneous
  Country: CA (occurrence: CA)
  Receive Date: 20210927
  Receipt Date: 20210927
  Transmission Date: 20211014
  Serious: Yes (Hospitalization, Other)
  Sender: FDA-Public Use
  Company Number: CA-AUROBINDO-AUR-APL-2021-039889

PATIENT
  Age: 72 Year
  Sex: Female
  Weight: 77 kg

DRUGS (20)
  1. LEVETIRACETAM. [Suspect]
     Active Substance: LEVETIRACETAM
     Indication: SEIZURE
     Dosage: 1.0 DOSAGE FORM, TWO TIMES A DAY
     Route: 065
  2. OMALIZUMAB. [Suspect]
     Active Substance: OMALIZUMAB
     Indication: ASTHMA
     Dosage: UNK
     Route: 058
  3. OMALIZUMAB. [Suspect]
     Active Substance: OMALIZUMAB
     Dosage: UNK
     Route: 058
  4. OMALIZUMAB. [Suspect]
     Active Substance: OMALIZUMAB
     Dosage: UNK
     Route: 058
  5. OMALIZUMAB. [Suspect]
     Active Substance: OMALIZUMAB
     Dosage: 150.0 MILLIGRAM
     Route: 058
  6. OMALIZUMAB. [Suspect]
     Active Substance: OMALIZUMAB
     Dosage: 150.0 MILLIGRAM
     Route: 058
  7. OMALIZUMAB. [Suspect]
     Active Substance: OMALIZUMAB
     Dosage: UNK
     Route: 058
  8. DEXAMETHASONE;TOBRAMYCIN [Concomitant]
     Active Substance: DEXAMETHASONE\TOBRAMYCIN
     Dosage: 1.0 DOSAGE FORM, FOUR TIMES/DAY
     Route: 065
  9. SEEBRI BREEZHALER [Concomitant]
     Active Substance: GLYCOPYRROLATE
     Indication: PRODUCT USED FOR UNKNOWN INDICATION
     Dosage: UNK
  10. OMALIZUMAB. [Suspect]
     Active Substance: OMALIZUMAB
     Dosage: 250.0 MILLIGRAM
     Route: 058
  11. OMALIZUMAB. [Suspect]
     Active Substance: OMALIZUMAB
     Dosage: UNK
     Route: 058
  12. DEXAMETHASONE;TOBRAMYCIN [Concomitant]
     Active Substance: DEXAMETHASONE\TOBRAMYCIN
     Indication: PRODUCT USED FOR UNKNOWN INDICATION
     Dosage: 1.0 DOSAGE FORM, TWO TIMES A DAY
     Route: 065
  13. OMALIZUMAB. [Suspect]
     Active Substance: OMALIZUMAB
     Dosage: UNK
     Route: 058
  14. OMALIZUMAB. [Suspect]
     Active Substance: OMALIZUMAB
     Dosage: 150.0 MILLIGRAM
     Route: 058
  15. OMALIZUMAB. [Suspect]
     Active Substance: OMALIZUMAB
     Dosage: UNK
     Route: 058
  16. OMALIZUMAB. [Suspect]
     Active Substance: OMALIZUMAB
     Dosage: 150.0 MILLIGRAM
     Route: 058
  17. OMALIZUMAB. [Suspect]
     Active Substance: OMALIZUMAB
     Dosage: 150.0 MILLIGRAM
     Route: 058
  18. OMALIZUMAB. [Suspect]
     Active Substance: OMALIZUMAB
     Dosage: 300.0 MILLIGRAM
     Route: 058
  19. OMALIZUMAB. [Suspect]
     Active Substance: OMALIZUMAB
     Dosage: UNK
     Route: 058
  20. OMALIZUMAB. [Suspect]
     Active Substance: OMALIZUMAB
     Dosage: 150.0 MILLIGRAM
     Route: 058

REACTIONS (33)
  - Asthma [Not Recovered/Not Resolved]
  - Chills [Not Recovered/Not Resolved]
  - Headache [Not Recovered/Not Resolved]
  - Interstitial lung disease [Not Recovered/Not Resolved]
  - Nasopharyngitis [Not Recovered/Not Resolved]
  - Pyrexia [Not Recovered/Not Resolved]
  - Seizure [Not Recovered/Not Resolved]
  - Wheezing [Not Recovered/Not Resolved]
  - Abdominal discomfort [Not Recovered/Not Resolved]
  - Chest discomfort [Not Recovered/Not Resolved]
  - Diarrhoea [Not Recovered/Not Resolved]
  - Dyspnoea [Not Recovered/Not Resolved]
  - Weight decreased [Not Recovered/Not Resolved]
  - Hyperhidrosis [Not Recovered/Not Resolved]
  - Insomnia [Not Recovered/Not Resolved]
  - Productive cough [Not Recovered/Not Resolved]
  - Respiratory rate decreased [Not Recovered/Not Resolved]
  - Chest pain [Not Recovered/Not Resolved]
  - Diplegia [Not Recovered/Not Resolved]
  - Fatigue [Not Recovered/Not Resolved]
  - Pneumonia [Not Recovered/Not Resolved]
  - Tremor [Not Recovered/Not Resolved]
  - Pneumonitis [Not Recovered/Not Resolved]
  - Viral infection [Not Recovered/Not Resolved]
  - Asthenia [Not Recovered/Not Resolved]
  - Vomiting [Not Recovered/Not Resolved]
  - Cough [Not Recovered/Not Resolved]
  - Forced expiratory volume decreased [Not Recovered/Not Resolved]
  - Malaise [Not Recovered/Not Resolved]
  - Muscular weakness [Not Recovered/Not Resolved]
  - Pulmonary congestion [Not Recovered/Not Resolved]
  - Sputum discoloured [Not Recovered/Not Resolved]
  - Chronic obstructive pulmonary disease [Not Recovered/Not Resolved]
